FAERS Safety Report 7967204-2 (Version None)
Quarter: 2011Q4

REPORT INFORMATION
  Report Type: 
  Country: None (occurrence: None)
  Receive Date: 20111209
  Receipt Date: 20111202
  Transmission Date: 20120403
  Serious: Yes (Hospitalization)
  Sender: FDA-Public Use
  Company Number: US-JNJFOC-20111201958

PATIENT
  Sex: Male
  Weight: 68.04 kg

DRUGS (3)
  1. NUCYNTA [Suspect]
     Indication: BACK PAIN
     Dosage: 1-2 TABLETS DAILY
     Route: 048
     Dates: start: 20100101
  2. AMBIEN [Concomitant]
     Indication: SLEEP DISORDER
     Dosage: HS
     Route: 048
  3. VALIUM [Concomitant]
     Indication: ANXIETY
     Dosage: EVERYDAY
     Route: 048

REACTIONS (3)
  - PANCREATITIS ACUTE [None]
  - ANURIA [None]
  - BACK PAIN [None]
